FAERS Safety Report 9895768 (Version 1)
Quarter: 2014Q1

REPORT INFORMATION
  Report Type: Spontaneous
  Country: US (occurrence: US)
  Receive Date: 20140213
  Receipt Date: 20140213
  Transmission Date: 20141002
  Serious: No
  Sender: FDA-Public Use
  Company Number: US-BRISTOL-MYERS SQUIBB COMPANY-19448794

PATIENT
  Age: 48 Year
  Sex: Male
  Weight: 81.63 kg

DRUGS (8)
  1. ABATACEPT SUBQ INJECTION 125MG/ML [Suspect]
     Dosage: 1DF=125MG/ML:4PACKS
     Route: 058
  2. PLAQUENIL [Concomitant]
     Dosage: TAB
  3. CELEBREX [Concomitant]
     Dosage: CAPS
  4. PREDNISONE [Concomitant]
     Dosage: TAB
  5. DILTIAZEM HCL [Concomitant]
     Dosage: CAP
  6. BENAZEPRIL HCL [Concomitant]
     Dosage: TAB
  7. SULFASALAZINE [Concomitant]
     Dosage: TAB
  8. ALEVE [Concomitant]
     Dosage: TAB

REACTIONS (2)
  - Arthralgia [Unknown]
  - Pain in extremity [Unknown]
